FAERS Safety Report 21529638 (Version 4)
Quarter: 2023Q1

REPORT INFORMATION
  Report Type: Spontaneous
  Country: US (occurrence: US)
  Receive Date: 20221031
  Receipt Date: 20230110
  Transmission Date: 20230417
  Serious: No
  Sender: FDA-Public Use
  Company Number: US-BIOGEN-2022BI01142473

PATIENT
  Sex: Female

DRUGS (6)
  1. VUMERITY [Suspect]
     Active Substance: DIROXIMEL FUMARATE
     Indication: Multiple sclerosis
     Route: 050
     Dates: start: 20210330
  2. VUMERITY [Suspect]
     Active Substance: DIROXIMEL FUMARATE
     Route: 050
  3. EPITOL [Concomitant]
     Active Substance: CARBAMAZEPINE
     Route: 050
  4. LEVOTHYROXINE SODIUM [Concomitant]
     Active Substance: LEVOTHYROXINE SODIUM
     Route: 050
  5. LYRICA [Concomitant]
     Active Substance: PREGABALIN
     Route: 050
  6. PAIN RELIEF CHILDRENS [Concomitant]
     Active Substance: ACETAMINOPHEN
     Route: 050

REACTIONS (4)
  - Product dose omission issue [Unknown]
  - Trigeminal neuralgia [Not Recovered/Not Resolved]
  - Aphasia [Unknown]
  - Multiple sclerosis [Unknown]
